FAERS Safety Report 8759386 (Version 2)
Quarter: 2013Q1

REPORT INFORMATION
  Report Type: Report from Study
  Country: JP (occurrence: JP)
  Receive Date: 20120829
  Receipt Date: 20130325
  Transmission Date: 20140127
  Serious: Yes (Hospitalization)
  Sender: FDA-Public Use
  Company Number: JP-VERTEX PHARMACEUTICAL INC.-2012-019970

PATIENT
  Age: 57 Year
  Sex: Female

DRUGS (6)
  1. VX-950 (TELAPREVIR) [Suspect]
     Indication: CHRONIC HEPATITIS C
     Dosage: 1500 MG, QD
     Route: 048
     Dates: start: 20120615, end: 20120720
  2. PEGINTERFERON ALFA-2B [Concomitant]
     Dosage: 80 ?G, QW
     Route: 058
     Dates: start: 20120615, end: 20120718
  3. RIBAVIRIN [Concomitant]
     Dosage: 400 MG, QD
     Route: 048
     Dates: start: 20120615, end: 20120720
  4. URSO [Concomitant]
     Dosage: 600 MG, QD
     Route: 048
  5. ZANTAC [Concomitant]
     Dosage: 300 MG, QD
     Route: 048
     Dates: end: 20120625
  6. RIZE [Concomitant]
     Dosage: 20 MG, QD
     Route: 048
     Dates: end: 20120831

REACTIONS (1)
  - Dizziness [Recovered/Resolved]
